FAERS Safety Report 4134504 (Version 2)
Quarter: 2017Q1

REPORT INFORMATION
  Report Type: Spontaneous
  Country: JP (occurrence: JP)
  Receive Date: 20040428
  Receipt Date: 20170207
  Transmission Date: 20170429
  Serious: Yes (Other)
  Sender: FDA-Public Use
  Company Number: JP-BRISTOL-MYERS SQUIBB COMPANY-12563086

PATIENT
  Age: 67 Year
  Sex: Male

DRUGS (2)
  1. TAXOL [Suspect]
     Active Substance: PACLITAXEL
     Indication: LUNG NEOPLASM MALIGNANT
     Dosage: 275 MG, QWK
     Route: 042
     Dates: start: 20031222, end: 20031222
  2. PARAPLATIN [Suspect]
     Active Substance: CARBOPLATIN
     Indication: LUNG NEOPLASM MALIGNANT
     Dosage: 450 MG, UNK
     Route: 042
     Dates: start: 20031222, end: 20031222

REACTIONS (2)
  - Interstitial lung disease [Recovered/Resolved]
  - Pyrexia [Unknown]

NARRATIVE: CASE EVENT DATE: 20040120
